FAERS Safety Report 9665133 (Version 2)
Quarter: 2013Q4

REPORT INFORMATION
  Report Type: Report from Study
  Country: US (occurrence: US)
  Receive Date: 20131101
  Receipt Date: 20131101
  Transmission Date: 20140711
  Serious: Yes (Other)
  Sender: FDA-Public Use
  Company Number: US-ABBVIE-13P-163-1066314-00

PATIENT
  Sex: Female
  Weight: 118.49 kg

DRUGS (32)
  1. HUMIRA [Suspect]
     Indication: PSORIASIS
     Route: 058
     Dates: start: 20121025, end: 201305
  2. UNKNOWN DIURETIC [Suspect]
     Indication: PRODUCT USED FOR UNKNOWN INDICATION
  3. UNKNOWN ARB [Suspect]
     Indication: PRODUCT USED FOR UNKNOWN INDICATION
  4. UNKNOWN NSAID [Suspect]
     Indication: PRODUCT USED FOR UNKNOWN INDICATION
  5. VIIBRYD [Concomitant]
     Indication: DEPRESSION
  6. GLUCOPHAGE [Concomitant]
     Indication: DIABETES MELLITUS
  7. CLARITIN [Concomitant]
     Indication: HYPERSENSITIVITY
  8. LASIX [Concomitant]
     Indication: FLUID RETENTION
  9. LEVEMIR [Concomitant]
     Indication: DIABETES MELLITUS
  10. HUMALOG [Concomitant]
     Indication: DIABETES MELLITUS
     Dosage: BY SLIDING SCALE, 3 TIMES A DAY OR MORE
  11. DILAUDID [Concomitant]
     Indication: DIABETIC NEUROPATHY
  12. NORCO [Concomitant]
     Indication: DIABETIC NEUROPATHY
     Dosage: 7.5/325MG
  13. CALCIPOTRIENE [Concomitant]
     Indication: PSORIASIS
  14. KETOCONAZOLE [Concomitant]
     Indication: PSORIASIS
  15. CLOBETASOL [Concomitant]
     Indication: PRODUCT USED FOR UNKNOWN INDICATION
  16. DEXAMETHASONE [Concomitant]
     Indication: PSORIASIS
  17. MUPIROCIN [Concomitant]
     Indication: PSORIASIS
  18. VALIUM [Concomitant]
     Indication: ANXIETY
  19. DICLOFENAC [Concomitant]
     Indication: ANALGESIC INTERVENTION SUPPORTIVE THERAPY
  20. MYLANTA DOUBLE STRENGTH [Concomitant]
     Indication: PRODUCT USED FOR UNKNOWN INDICATION
  21. MILK OF MAGNESIA [Concomitant]
     Indication: PRODUCT USED FOR UNKNOWN INDICATION
  22. VITAMIN B12 [Concomitant]
     Indication: PRODUCT USED FOR UNKNOWN INDICATION
     Dosage: MONTHLY
  23. ICY HOT [Concomitant]
     Indication: ARTHRALGIA
  24. PREPARATION H [Concomitant]
     Indication: HAEMORRHOIDS
  25. MAGNESIUM [Concomitant]
     Indication: MINERAL SUPPLEMENTATION
  26. VIT D [Concomitant]
     Indication: PRODUCT USED FOR UNKNOWN INDICATION
  27. GABAPENTIN [Concomitant]
     Indication: DIABETIC NEUROPATHY
  28. BENADRYL [Concomitant]
     Indication: FEELING OF RELAXATION
     Dosage: TWICE A DAY OR AS NEEDED
  29. DIOVAN HCT [Concomitant]
     Indication: HYPERTENSION
     Dosage: 320-12.5MG DAILY
  30. FLONASE [Concomitant]
     Indication: HYPERSENSITIVITY
     Dosage: EACH NOSTRIL
  31. VISTARIL [Concomitant]
     Indication: FEELING OF RELAXATION
     Dosage: FROM PSYCHIATRIST
  32. AMBIEN [Concomitant]
     Indication: PRODUCT USED FOR UNKNOWN INDICATION
     Dosage: AT SLEEP

REACTIONS (13)
  - Nephropathy [Recovered/Resolved]
  - Renal impairment [Recovered/Resolved]
  - Fatigue [Recovered/Resolved]
  - Diarrhoea [Recovered/Resolved]
  - Injection site bruising [Not Recovered/Not Resolved]
  - Injection site haemorrhage [Not Recovered/Not Resolved]
  - Psoriasis [Not Recovered/Not Resolved]
  - Insomnia [Unknown]
  - Bacterial test positive [Recovering/Resolving]
  - Decreased appetite [Not Recovered/Not Resolved]
  - Insomnia [Unknown]
  - Skin depigmentation [Unknown]
  - Glomerular filtration rate increased [Not Recovered/Not Resolved]
